FAERS Safety Report 4411810-9 (Version None)
Quarter: 2004Q3

REPORT INFORMATION
  Report Type: 
  Country: None (occurrence: None)
  Receive Date: 20040730
  Receipt Date: 20040720
  Transmission Date: 20050211
  Serious: Yes (Disabling)
  Sender: FDA-Public Use
  Company Number: IT-AMGEN-UK083904

PATIENT
  Sex: Female

DRUGS (1)
  1. NESPO [Suspect]
     Indication: RENAL FAILURE CHRONIC
     Route: 058
     Dates: start: 20040421, end: 20040421

REACTIONS (2)
  - DERMATITIS EXFOLIATIVE [None]
  - HEPATITIS CHOLESTATIC [None]
